FAERS Safety Report 18353607 (Version 1)
Quarter: 2020Q4

REPORT INFORMATION
  Report Type: Spontaneous
  Country: US (occurrence: US)
  Receive Date: 20201006
  Receipt Date: 20201006
  Transmission Date: 20210114
  Serious: No
  Sender: FDA-Public Use
  Company Number: US-ROCHE-2550044

PATIENT
  Age: 57 Year
  Sex: Male
  Weight: 84.9 kg

DRUGS (6)
  1. AMOXICILLIN. [Concomitant]
     Active Substance: AMOXICILLIN
  2. LEVOTHYROXINE. [Concomitant]
     Active Substance: LEVOTHYROXINE
  3. VITAMIN B [Concomitant]
     Active Substance: VITAMIN B
  4. ZELBORAF [Suspect]
     Active Substance: VEMURAFENIB
     Indication: THYROID CANCER
     Dosage: 720 MG BY MOUTH TWICE DAILY
     Route: 048
     Dates: start: 202002
  5. ZELBORAF [Suspect]
     Active Substance: VEMURAFENIB
     Indication: NEOPLASM MALIGNANT
     Dosage: 960 MG BY MOUTH TWICE DAILY ;ONGOING: YES
     Route: 048
     Dates: start: 201912
  6. TYLENOL [Concomitant]
     Active Substance: ACETAMINOPHEN

REACTIONS (9)
  - Joint swelling [Recovered/Resolved]
  - Pruritus [Recovered/Resolved]
  - Myalgia [Unknown]
  - Intentional product use issue [Unknown]
  - Off label use [Unknown]
  - Alopecia [Unknown]
  - Taste disorder [Unknown]
  - Dry mouth [Recovered/Resolved]
  - Blister [Recovered/Resolved]

NARRATIVE: CASE EVENT DATE: 201912
